FAERS Safety Report 12071669 (Version 2)
Quarter: 2016Q1

REPORT INFORMATION
  Report Type: Spontaneous
  Country: US (occurrence: US)
  Receive Date: 20160212
  Receipt Date: 20160223
  Transmission Date: 20160526
  Serious: Yes (Hospitalization)
  Sender: FDA-Public Use
  Company Number: US-ROCHE-1708900

PATIENT
  Age: 58 Year
  Sex: Male
  Weight: 88.53 kg

DRUGS (7)
  1. ACTEMRA [Suspect]
     Active Substance: TOCILIZUMAB
     Indication: RHEUMATOID ARTHRITIS
     Route: 058
     Dates: start: 20140218, end: 20140428
  2. REMICADE [Concomitant]
     Active Substance: INFLIXIMAB
  3. ARAVA [Concomitant]
     Active Substance: LEFLUNOMIDE
  4. RITUXAN [Suspect]
     Active Substance: RITUXIMAB
     Indication: RHEUMATOID ARTHRITIS
     Route: 065
  5. ORENCIA [Concomitant]
     Active Substance: ABATACEPT
  6. PREDNISONE. [Concomitant]
     Active Substance: PREDNISONE
     Route: 048
  7. TRAMADOL. [Concomitant]
     Active Substance: TRAMADOL
     Route: 065

REACTIONS (5)
  - Intestinal perforation [Recovered/Resolved]
  - Pain [Unknown]
  - Sepsis [Recovered/Resolved]
  - Renal failure [Unknown]
  - Inflammation [Unknown]

NARRATIVE: CASE EVENT DATE: 201404
